FAERS Safety Report 7734893-7 (Version None)
Quarter: 2011Q3

REPORT INFORMATION
  Report Type: 
  Country: None (occurrence: None)
  Receive Date: 20110907
  Receipt Date: 20110825
  Transmission Date: 20111222
  Serious: Yes (Other)
  Sender: FDA-Public Use
  Company Number: PHEH2011US02606

PATIENT
  Age: 52 Year
  Sex: Female

DRUGS (5)
  1. EXFORGE HCT [Suspect]
     Dosage: 160 MG, UNK
  2. EXFORGE HCT [Suspect]
     Dosage: 320/10/25 MG, UNK
  3. CENTRUM SILVER [Concomitant]
     Dosage: UNK UKN, UNK
  4. MEGABOUNY [Concomitant]
     Dosage: UNK UKN, UNK
  5. BLOOD PRESSURE PILL [Concomitant]
     Dosage: UNK UKN, UNK

REACTIONS (12)
  - PULMONARY FIBROSIS [None]
  - BLOOD PRESSURE DECREASED [None]
  - UTERINE HAEMORRHAGE [None]
  - PULMONARY OEDEMA [None]
  - CERVICAL CYST [None]
  - SUICIDE ATTEMPT [None]
  - FEELING ABNORMAL [None]
  - SCOLIOSIS [None]
  - BACK PAIN [None]
  - PAIN [None]
  - VERTIGO [None]
  - ANAEMIA [None]
